FAERS Safety Report 9362699 (Version 1)
Quarter: 2013Q2

REPORT INFORMATION
  Report Type: Spontaneous
  Country: US (occurrence: US)
  Receive Date: 20130622
  Receipt Date: 20130622
  Transmission Date: 20140414
  Serious: Yes (Hospitalization)
  Sender: FDA-Public Use
  Company Number: US-US-EMD SERONO, INC.-230600J08USA

PATIENT
  Sex: Female

DRUGS (3)
  1. REBIF [Suspect]
     Indication: MULTIPLE SCLEROSIS
     Route: 058
     Dates: start: 20050121
  2. MOTRIN [Concomitant]
     Indication: PREMEDICATION
  3. ZOLOFT                             /01011401/ [Concomitant]
     Indication: DEPRESSION

REACTIONS (2)
  - Depression [Unknown]
  - Hyperthyroidism [Unknown]
